FAERS Safety Report 6882234-X (Version None)
Quarter: 2010Q3

REPORT INFORMATION
  Report Type: 
  Country: None (occurrence: None)
  Receive Date: 20100729
  Receipt Date: 20100721
  Transmission Date: 20110219
  Serious: Yes (Hospitalization, Other)
  Sender: FDA-Public Use
  Company Number: AR-ELI_LILLY_AND_COMPANY-AR201007004192

PATIENT
  Sex: Male

DRUGS (8)
  1. HUMALOG MIX 50/50 [Suspect]
     Dosage: 25 IU, 2/D
     Route: 065
     Dates: start: 20100223
  2. HUMALOG MIX 50/50 [Suspect]
     Dosage: 110 IU, OTHER
     Route: 065
  3. HUMALOG MIX 50/50 [Suspect]
     Dosage: UNK, UNKNOWN
     Route: 065
  4. ATORVASTATIN [Concomitant]
  5. ASPIRIN [Concomitant]
  6. LEVOTHYROXINE SODIUM [Concomitant]
  7. CARVEDILOL [Concomitant]
  8. LOSARTAN POSTASSIUM [Concomitant]

REACTIONS (5)
  - CEREBROVASCULAR ACCIDENT [None]
  - FALL [None]
  - HYPOGLYCAEMIA [None]
  - PARESIS [None]
  - VOMITING [None]
